FAERS Safety Report 7205724-9 (Version None)
Quarter: 2010Q4

REPORT INFORMATION
  Report Type: 
  Country: None (occurrence: None)
  Receive Date: 20101231
  Receipt Date: 20101221
  Transmission Date: 20110411
  Serious: Yes (Death)
  Sender: FDA-Public Use
  Company Number: AT-ACTELION-A-CH2010-41426

PATIENT
  Sex: Male

DRUGS (1)
  1. TRACLEER [Suspect]
     Indication: PULMONARY ARTERIAL HYPERTENSION
     Dosage: 125 MG, BID
     Route: 048
     Dates: start: 20060901, end: 20100801

REACTIONS (8)
  - CARDIOVERSION [None]
  - CONCOMITANT DISEASE AGGRAVATED [None]
  - CONDITION AGGRAVATED [None]
  - DYSPNOEA [None]
  - GENERAL PHYSICAL CONDITION ABNORMAL [None]
  - PNEUMONIA [None]
  - SYSTEMIC SCLEROSIS [None]
  - TACHYCARDIA [None]
